FAERS Safety Report 24700981 (Version 1)
Quarter: 2024Q4

REPORT INFORMATION
  Report Type: Report from Study
  Country: US (occurrence: US)
  Receive Date: 20241205
  Receipt Date: 20241205
  Transmission Date: 20250115
  Serious: Yes (Hospitalization)
  Sender: MYLAN
  Company Number: US-MYLANLABS-2024M1108192

PATIENT
  Sex: Male

DRUGS (9)
  1. DOXORUBICIN [Suspect]
     Active Substance: DOXORUBICIN
     Indication: Seminoma
     Dosage: 30 MILLIGRAM/SQ. METER, OVER 15?MINUTES; AS A PART OF ATP REGIMEN
     Route: 042
  2. DOXORUBICIN [Suspect]
     Active Substance: DOXORUBICIN
     Indication: Testicular embryonal carcinoma
  3. DOXORUBICIN [Suspect]
     Active Substance: DOXORUBICIN
     Indication: Teratoma
  4. CISPLATIN [Suspect]
     Active Substance: CISPLATIN
     Indication: Seminoma
     Dosage: OVER 2 HOURS; AS A PART OF ATP REGIMEN
     Route: 065
  5. CISPLATIN [Suspect]
     Active Substance: CISPLATIN
     Indication: Testicular embryonal carcinoma
  6. CISPLATIN [Suspect]
     Active Substance: CISPLATIN
     Indication: Teratoma
  7. PACLITAXEL [Suspect]
     Active Substance: PACLITAXEL
     Indication: Seminoma
     Dosage: 100 MILLIGRAM/SQ. METER, OVER 1 HOUR; AS A PART OF ATP REGIMEN
     Route: 042
  8. PACLITAXEL [Suspect]
     Active Substance: PACLITAXEL
     Indication: Testicular embryonal carcinoma
  9. PACLITAXEL [Suspect]
     Active Substance: PACLITAXEL
     Indication: Teratoma

REACTIONS (2)
  - Disease progression [Unknown]
  - Drug ineffective [Unknown]
